FAERS Safety Report 23315029 (Version 1)
Quarter: 2023Q4

REPORT INFORMATION
  Report Type: Spontaneous
  Country: AT (occurrence: AT)
  Receive Date: 20231219
  Receipt Date: 20231219
  Transmission Date: 20240110
  Serious: Yes (Other)
  Sender: FDA-Public Use
  Company Number: AT-AMGEN-AUTSP2023216034

PATIENT
  Age: 50 Year

DRUGS (9)
  1. DEXAMETHASONE [Suspect]
     Active Substance: DEXAMETHASONE
     Indication: Plasma cell leukaemia
     Dosage: UNK
     Route: 065
     Dates: start: 202301
  2. DEXAMETHASONE [Suspect]
     Active Substance: DEXAMETHASONE
     Dosage: UNK
     Route: 065
     Dates: start: 20200831, end: 202301
  3. DARATUMUMAB [Suspect]
     Active Substance: DARATUMUMAB
     Indication: Plasma cell leukaemia
     Dosage: UNK
     Route: 065
     Dates: start: 20200831, end: 202301
  4. KYPROLIS [Suspect]
     Active Substance: CARFILZOMIB
     Indication: Plasma cell leukaemia
     Dosage: UNK
     Route: 065
     Dates: start: 20200831, end: 202301
  5. LENALIDOMIDE [Suspect]
     Active Substance: LENALIDOMIDE
     Indication: Plasma cell leukaemia
     Dosage: UNK
     Route: 065
     Dates: start: 20200831, end: 202301
  6. POMALIDOMIDE [Concomitant]
     Active Substance: POMALIDOMIDE
     Indication: Plasma cell leukaemia
     Dosage: UNK
     Dates: start: 202301
  7. TECLISTAMAB [Concomitant]
     Active Substance: TECLISTAMAB
     Indication: Plasma cell leukaemia
     Dosage: UNK
  8. ELOTUZUMAB [Concomitant]
     Active Substance: ELOTUZUMAB
     Indication: Plasma cell leukaemia
     Dosage: UNK
     Dates: start: 202301
  9. CYCLOPHOSPHAMIDE [Concomitant]
     Active Substance: CYCLOPHOSPHAMIDE
     Indication: Haematopoietic stem cell mobilisation
     Dosage: UNK

REACTIONS (2)
  - Plasma cell leukaemia [Unknown]
  - Off label use [Unknown]

NARRATIVE: CASE EVENT DATE: 20200831
